FAERS Safety Report 20356611 (Version 4)
Quarter: 2025Q3

REPORT INFORMATION
  Report Type: Report from Study
  Country: TW (occurrence: TW)
  Receive Date: 20220120
  Receipt Date: 20250926
  Transmission Date: 20251021
  Serious: Yes (Death, Hospitalization)
  Sender: BOEHRINGER INGELHEIM
  Company Number: TW-BoehringerIngelheim-2022-BI-108019

PATIENT
  Age: 94 Year
  Sex: Female
  Weight: 40 kg

DRUGS (26)
  1. OFEV [Suspect]
     Active Substance: NINTEDANIB
     Indication: Idiopathic pulmonary fibrosis
     Dates: start: 20210122, end: 20210513
  2. Medicon A cap (ROMICON A) [Concomitant]
     Indication: Cough
     Dosage: DEXTROMETHORPHAN HBR 40MG+ POTASSIUM CRESOSULFONATE 180MG+ LYSOZYME HCL 40MG
     Dates: start: 20210122, end: 20210415
  3. Medicon A cap (ROMICON A) [Concomitant]
     Dosage: DEXTROMETHORPHAN HBR 40MG+ POTASSIUM CRESOSULFONATE 180MG+ LYSOZYME HCL 40MG
     Dates: start: 20210416, end: 20210624
  4. Medicon A cap (ROMICON A) [Concomitant]
     Dosage: DEXTROMETHORPHAN HBR 40MG+ POTASSIUM CRESOSULFONATE 180MG+ LYSOZYME HCL 40MG
     Dates: start: 20210625
  5. Salbutamol Ventolin (SALTOLIN) 2mg/tab [Concomitant]
     Indication: Asthma
     Dates: start: 20210122, end: 20210415
  6. Salbutamol Ventolin (SALTOLIN) 2mg/tab [Concomitant]
     Indication: Bronchitis
     Dates: start: 20210416, end: 20210624
  7. Salbutamol Ventolin (SALTOLIN) 2mg/tab [Concomitant]
     Dates: start: 20210625, end: 20211125
  8. Senokot 12mg/tab Sennosides A+B [Concomitant]
     Indication: Constipation
     Dates: start: 20210122, end: 20210218
  9. Erythromycin 250mg/cap [Concomitant]
     Indication: Infection
     Dates: start: 20210122, end: 20210218
  10. Primperan 5mg/tab [Concomitant]
     Indication: Gastrooesophageal reflux disease
     Dates: start: 20210219, end: 20210415
  11. Primperan 5mg/tab [Concomitant]
     Dates: start: 20210416, end: 20210513
  12. Primperan 5mg/tab [Concomitant]
     Dates: start: 20211126, end: 20211226
  13. Salbutamol Ventolin (SALTOLIN) 2mg/tab [Concomitant]
     Indication: Asthma
     Dates: start: 20210122, end: 20210415
  14. Salbutamol Ventolin (SALTOLIN) 2mg/tab [Concomitant]
     Dates: start: 20210416, end: 20210624
  15. Salbutamol Ventolin (SALTOLIN) 2mg/tab [Concomitant]
     Dates: start: 20210625, end: 20211125
  16. Cividoid gel 20gm/tube [Concomitant]
     Indication: Contusion
     Dates: start: 20210723, end: 20210917
  17. Cividoid gel 20gm/tube [Concomitant]
     Dates: start: 20211227
  18. Medicon A cap (ROMICON A) [Concomitant]
     Indication: Cough
     Dosage: DEXTROMETHORPHAN HBR 40MG+ POTASSIUM CRESOSULFONATE 180MG+ LYSOZYME HCL 40MG
     Dates: start: 20210122, end: 20210415
  19. Medicon A cap (ROMICON A) [Concomitant]
     Dosage: DEXTROMETHORPHAN HBR 40MG+ POTASSIUM CRESOSULFONATE 180MG+ LYSOZYME HCL 40MG
     Dates: start: 20210416, end: 20210624
  20. Medicon A cap (ROMICON A) [Concomitant]
     Dosage: DEXTROMETHORPHAN HBR 40MG+ POTASSIUM CRESOSULFONATE 180MG+ LYSOZYME HCL 40MG
     Dates: start: 20210625
  21. MgO (Magnesium oxide) 250mg/tab [Concomitant]
     Indication: Gastrooesophageal reflux disease
     Dates: start: 20211112, end: 20211216
  22. Burinex (Busix) 1mg/tab [Concomitant]
     Indication: Oedema
     Dates: start: 20210219, end: 20210805
  23. Burinex (Busix) 1mg/tab [Concomitant]
     Dosage: PRN QD
     Dates: start: 20210806
  24. Feburic F.C 80mg/tab [Concomitant]
     Indication: Gouty arthritis
     Dates: start: 20210219
  25. Burinex (Busix) 1mg/tab [Concomitant]
     Indication: Oedema
     Dates: start: 20210219, end: 20210805
  26. Burinex (Busix) 1mg/tab [Concomitant]
     Dates: start: 20210806

REACTIONS (4)
  - Hyperkalaemia [Fatal]
  - Decreased appetite [Not Recovered/Not Resolved]
  - Diarrhoea [Recovered/Resolved]
  - Hepatic function abnormal [Recovered/Resolved]

NARRATIVE: CASE EVENT DATE: 20210514
